FAERS Safety Report 5847525-X (Version None)
Quarter: 2008Q3

REPORT INFORMATION
  Report Type: 
  Country: None (occurrence: None)
  Receive Date: 20080814
  Receipt Date: 20080811
  Transmission Date: 20090109
  Serious: Yes (Other)
  Sender: FDA-Public Use
  Company Number: 2008SP015894

PATIENT
  Age: 68 Year
  Sex: Female
  Weight: 90 kg

DRUGS (14)
  1. TEMOZOLOMIDE [Suspect]
     Indication: GLIOBLASTOMA
     Dosage: 150 MG/M2; PO
     Route: 048
     Dates: start: 20080521, end: 20080610
  2. TEMOZOLOMIDE [Suspect]
     Indication: GLIOBLASTOMA
     Dosage: 150 MG/M2; PO
     Route: 048
     Dates: start: 20080312
  3. OMEPRAZOLE [Concomitant]
  4. LIPITOR [Concomitant]
  5. LORATADINE [Concomitant]
  6. ASPIRIN [Concomitant]
  7. MULTI-VITAMINS [Concomitant]
  8. CALCIUM [Concomitant]
  9. DEXAMETHASONE TAB [Concomitant]
  10. VICODIN [Concomitant]
  11. ZOLOFT [Concomitant]
  12. DIFLUCAN [Concomitant]
  13. STOOL SOFTENER [Concomitant]
  14. PENTAMIDINE [Concomitant]

REACTIONS (1)
  - LYMPHOPENIA [None]
